FAERS Safety Report 19818305 (Version 1)
Quarter: 2021Q3

REPORT INFORMATION
  Report Type: Spontaneous
  Country: DE (occurrence: DE)
  Receive Date: 20210911
  Receipt Date: 20210911
  Transmission Date: 20211014
  Serious: Yes (Hospitalization)
  Sender: FDA-Public Use
  Company Number: NVSC2021DE205727

PATIENT
  Sex: Female

DRUGS (4)
  1. ULTIBRO BREEZHALER [Suspect]
     Active Substance: GLYCOPYRRONIUM\INDACATEROL
     Indication: PRODUCT USED FOR UNKNOWN INDICATION
     Dosage: UNK, QD
     Route: 065
     Dates: start: 2020
  2. OMEPRAZOLE. [Concomitant]
     Active Substance: OMEPRAZOLE
     Indication: PRODUCT USED FOR UNKNOWN INDICATION
     Dosage: UNK, PRN (AS NEEDED)
     Route: 065
  3. SALBUTAMOL [Concomitant]
     Active Substance: ALBUTEROL
     Indication: PRODUCT USED FOR UNKNOWN INDICATION
     Dosage: UNK, PRN (AS NEEDED)
     Route: 065
  4. ULTIBRO BREEZHALER [Suspect]
     Active Substance: GLYCOPYRRONIUM\INDACATEROL
     Dosage: UNK, QD
     Route: 065
     Dates: end: 20210904

REACTIONS (9)
  - Cough [Unknown]
  - Diarrhoea [Unknown]
  - Sleep disorder [Unknown]
  - Myalgia [Unknown]
  - Wheezing [Unknown]
  - Rash [Recovering/Resolving]
  - Dyspnoea [Unknown]
  - Chronic obstructive pulmonary disease [Unknown]
  - Pain in extremity [Unknown]

NARRATIVE: CASE EVENT DATE: 2021
